FAERS Safety Report 7536629-1 (Version None)
Quarter: 2011Q2

REPORT INFORMATION
  Report Type: 
  Country: None (occurrence: None)
  Receive Date: 20110524
  Receipt Date: 20110524
  Transmission Date: 20111010
  Serious: No
  Sender: FDA-Public Use
  Company Number: 030346

PATIENT
  Sex: Female

DRUGS (1)
  1. CIMZIA [Suspect]
     Indication: CROHN'S DISEASE
     Dosage: SUBCUTANEOUS
     Dates: start: 20110322

REACTIONS (4)
  - HYPERHIDROSIS [None]
  - BLEPHAROSPASM [None]
  - INJECTION SITE HAEMATOMA [None]
  - INJECTION SITE PAIN [None]
